FAERS Safety Report 24354888 (Version 2)
Quarter: 2024Q4

REPORT INFORMATION
  Report Type: Spontaneous
  Country: JP (occurrence: JP)
  Receive Date: 20240923
  Receipt Date: 20241015
  Transmission Date: 20250115
  Serious: Yes (Other)
  Sender: MERCK
  Company Number: JP-009507513-2408JPN005859

PATIENT
  Age: 73 Year
  Sex: Male
  Weight: 60.8 kg

DRUGS (4)
  1. SUGAMMADEX SODIUM [Suspect]
     Active Substance: SUGAMMADEX SODIUM
     Indication: Neuromuscular blockade reversal
     Dosage: 200 MILLIGRAM, QD
     Route: 042
     Dates: start: 20240808
  2. DESFLURANE [Concomitant]
     Active Substance: DESFLURANE
     Indication: Sedation
     Dosage: 4 PERCENT, QD
     Route: 055
     Dates: start: 20240808, end: 20240808
  3. DIPRIVAN [Concomitant]
     Active Substance: PROPOFOL
     Indication: Sedation
     Dosage: 70 MILLIGRAM, QD
     Route: 042
     Dates: start: 20240808, end: 20240808
  4. REMIFENTANIL HYDROCHLORIDE [Concomitant]
     Active Substance: REMIFENTANIL HYDROCHLORIDE
     Indication: Analgesic therapy
     Dosage: 700
     Route: 042
     Dates: start: 20240808, end: 20240808

REACTIONS (4)
  - Anaphylactic shock [Recovered/Resolved]
  - Hypotension [Recovered/Resolved]
  - Airway peak pressure increased [Recovered/Resolved]
  - Hypoventilation [Recovered/Resolved]

NARRATIVE: CASE EVENT DATE: 20240808
